FAERS Safety Report 6282532-7 (Version None)
Quarter: 2009Q3

REPORT INFORMATION
  Report Type: 
  Country: None (occurrence: None)
  Receive Date: 20090724
  Receipt Date: 20090716
  Transmission Date: 20100115
  Serious: Yes (Life-Threatening)
  Sender: FDA-Public Use
  Company Number: FR-AVENTIS-200912627FR

PATIENT
  Age: 74 Year
  Sex: Female

DRUGS (11)
  1. ARAVA [Suspect]
     Indication: RHEUMATOID ARTHRITIS
     Route: 048
     Dates: start: 20021201
  2. CORTANCYL [Suspect]
     Indication: RHEUMATOID ARTHRITIS
     Route: 048
  3. TOPALGIC [Suspect]
     Indication: PAIN
     Route: 048
  4. HUMIRA [Suspect]
     Indication: RHEUMATOID ARTHRITIS
     Route: 058
     Dates: start: 20030201
  5. COVERSYL                           /00790701/ [Suspect]
     Route: 048
  6. FOSAMAX [Suspect]
     Indication: RHEUMATOID ARTHRITIS
     Route: 048
  7. DETENSIEL                          /00802601/ [Suspect]
     Route: 048
  8. MIRTAZAPINE [Suspect]
     Route: 048
  9. NEURONTIN [Suspect]
     Route: 048
  10. MOPRAL [Suspect]
     Indication: PROPHYLAXIS
     Route: 048
  11. DEPAKOTE [Suspect]
     Route: 048

REACTIONS (1)
  - PULMONARY EMBOLISM [None]
